FAERS Safety Report 11363228 (Version 2)
Quarter: 2015Q3

REPORT INFORMATION
  Report Type: Spontaneous
  Country: JP (occurrence: JP)
  Receive Date: 20150811
  Receipt Date: 20150921
  Transmission Date: 20151125
  Serious: Yes (Hospitalization, Other)
  Sender: FDA-Public Use
  Company Number: JP-BRISTOL-MYERS SQUIBB COMPANY-BMS-2015-052134

PATIENT
  Age: 89 Year
  Sex: Male
  Weight: 48 kg

DRUGS (7)
  1. LANSOPRAZOLE. [Concomitant]
     Active Substance: LANSOPRAZOLE
     Indication: DECREASED APPETITE
     Dosage: 15 MG, QD
     Route: 048
     Dates: start: 20150610, end: 20150621
  2. MAGMITT [Concomitant]
     Active Substance: MAGNESIUM OXIDE
     Dosage: 500 UNK, UNK
     Route: 048
     Dates: start: 20150622
  3. TAKEPRON [Suspect]
     Active Substance: LANSOPRAZOLE
     Indication: DECREASED APPETITE
     Dosage: 30 MG, QD
     Route: 048
     Dates: start: 20150622
  4. ELIETEN /00041901/ [Suspect]
     Active Substance: METOCLOPRAMIDE
     Indication: DECREASED APPETITE
     Dosage: 5 MG, BID
     Route: 048
     Dates: start: 20150622
  5. ELIQUIS [Suspect]
     Active Substance: APIXABAN
     Indication: CEREBROVASCULAR ACCIDENT PROPHYLAXIS
     Dosage: 5 MG, BID
     Route: 048
     Dates: start: 20150610
  6. MAGMITT [Concomitant]
     Active Substance: MAGNESIUM OXIDE
     Indication: CONSTIPATION
     Dosage: 250 MG, TID
     Route: 048
     Dates: start: 20150524, end: 20150621
  7. SENNOSIDE                          /00571901/ [Concomitant]
     Active Substance: SENNOSIDES A AND B
     Indication: CONSTIPATION
     Dosage: 24 MG, QD
     Route: 048
     Dates: start: 20150523

REACTIONS (1)
  - Interstitial lung disease [Recovered/Resolved]

NARRATIVE: CASE EVENT DATE: 20150714
